FAERS Safety Report 11215714 (Version 3)
Quarter: 2015Q3

REPORT INFORMATION
  Report Type: Spontaneous
  Country: US (occurrence: US)
  Receive Date: 20150624
  Receipt Date: 20150722
  Transmission Date: 20151125
  Serious: Yes (Hospitalization)
  Sender: FDA-Public Use
  Company Number: US-PFIZER INC-2015208263

PATIENT
  Age: 72 Year
  Sex: Female
  Weight: 88 kg

DRUGS (9)
  1. URSODIOL. [Suspect]
     Active Substance: URSODIOL
     Indication: LIVER TRANSPLANT REJECTION
     Dosage: 500 MG, 2X/DAY (TAKE 1 TAB BID)
     Dates: start: 20150616
  2. SYNTHROID [Concomitant]
     Active Substance: LEVOTHYROXINE SODIUM
     Dosage: 50 ?G, DAILY
     Route: 048
  3. METHENAMINE MANDELATE. [Concomitant]
     Active Substance: METHENAMINE MANDELATE
     Dosage: 1 G, DAILY
     Route: 048
     Dates: start: 20141231
  4. PROGRAFT [Suspect]
     Active Substance: TACROLIMUS
     Indication: LIVER TRANSPLANT REJECTION
     Dosage: 0.5 MG, UNK (EVERY 24 HOURS)
     Route: 048
     Dates: start: 20150616
  5. MELATONIN [Concomitant]
     Active Substance: MELATONIN
     Dosage: 5 MG, 1X/DAY
  6. PROBIOTICS [Concomitant]
     Active Substance: PROBIOTICS NOS
     Dosage: UNK UNK, 1X/DAY (10 BILLION CELL)
  7. CALCIUM + D [Concomitant]
     Active Substance: CALCIUM\VITAMIN D
     Dosage: 600 MG, 2X/DAY (ONE TABLET BY MOUTH BID)
     Route: 048
     Dates: start: 20141231
  8. BONIVA [Concomitant]
     Active Substance: IBANDRONATE SODIUM
     Dosage: 150 MG, MONTHLY
     Route: 048
     Dates: start: 20150106
  9. RAPAMUNE [Suspect]
     Active Substance: SIROLIMUS
     Indication: LIVER TRANSPLANT
     Dosage: 0.5 MG, 1X/DAY (ONE DAILY)
     Dates: start: 20150616

REACTIONS (4)
  - Urinary tract infection [Unknown]
  - Product use issue [Unknown]
  - Vomiting [Unknown]
  - Hyperglycaemia [Unknown]
